FAERS Safety Report 8300402-7 (Version None)
Quarter: 2012Q2

REPORT INFORMATION
  Report Type: 
  Country: None (occurrence: None)
  Receive Date: 20120417
  Receipt Date: 20120409
  Transmission Date: 20120825
  Serious: Yes (Disabling, Other)
  Sender: FDA-Public Use
  Company Number: 2009AL007731

PATIENT
  Sex: Male

DRUGS (52)
  1. LEVAQUIN [Concomitant]
  2. MULTIGEN [Concomitant]
  3. FLOMAX [Concomitant]
  4. PENTOXIFYLLINE [Concomitant]
  5. ATENOLOL [Concomitant]
  6. LORAZEPAM [Concomitant]
  7. FOSAMAX [Concomitant]
  8. GEMFIBROZIL [Concomitant]
  9. PHENYTOIN [Concomitant]
  10. BONIVA [Concomitant]
  11. METRONIDAZOLE [Concomitant]
  12. PREVACID [Concomitant]
  13. DIFLUCAN [Concomitant]
  14. DOCUSATE [Concomitant]
  15. CEPHALEXIN [Concomitant]
  16. GUAIFENESIN AND DEXTROMETHORPHAN HBR [Concomitant]
  17. FORADIL [Concomitant]
  18. ASPIRIN [Concomitant]
  19. FERROUS SULFATE TAB [Concomitant]
  20. METOCLOPRAMIDE [Suspect]
     Indication: GASTROOESOPHAGEAL REFLUX DISEASE
     Dosage: 10 MG
     Dates: start: 20000128, end: 20090609
  21. HUMULIN 70/30 [Concomitant]
  22. PROPOXYPHENE HCL AND ACETAMINOPHEN [Concomitant]
  23. WARFARIN SODIUM [Concomitant]
  24. NYSTOP [Concomitant]
  25. MOBIC [Concomitant]
  26. NASACORT [Concomitant]
  27. SPIRIVA [Concomitant]
  28. EFFEXOR [Concomitant]
  29. AMITIZA [Concomitant]
  30. TRAZODONE HCL [Concomitant]
  31. CHROMAGEN [Concomitant]
  32. HYDROCODONE BITARTRATE AND ACETAMINOPHEN [Concomitant]
  33. AZITHROMYCIN [Concomitant]
  34. SIMVASTATIN [Concomitant]
  35. GABAPENTIN [Concomitant]
  36. DILANTIN [Concomitant]
  37. ZOCOR [Concomitant]
  38. POLYETH/GLYCOL [Concomitant]
  39. COMBIVENT [Concomitant]
  40. NEXIUM [Concomitant]
  41. PANTOPRAZOLE [Concomitant]
  42. PEPCID [Concomitant]
  43. SENOKOT [Concomitant]
  44. BEXTRA [Concomitant]
  45. AVANDIA [Concomitant]
  46. AVINZA [Concomitant]
  47. SULFAMETHOXAZOLE AND TRIMETHOPRIM [Concomitant]
  48. VIGAMOX [Concomitant]
  49. FLUTICASONE FUROATE [Concomitant]
  50. GLYBURIDE [Concomitant]
  51. CEFUROXIME [Concomitant]
  52. XALATAN [Concomitant]

REACTIONS (24)
  - NERVOUS SYSTEM DISORDER [None]
  - CORONARY ARTERY DISEASE [None]
  - CEREBROVASCULAR ACCIDENT [None]
  - CONVULSION [None]
  - ANHEDONIA [None]
  - DIABETES MELLITUS [None]
  - TARDIVE DYSKINESIA [None]
  - MENTAL DISORDER [None]
  - PAIN [None]
  - NEUROPATHY PERIPHERAL [None]
  - DEEP VEIN THROMBOSIS [None]
  - HYPERTENSION [None]
  - OSTEOARTHRITIS [None]
  - DEFORMITY [None]
  - EMOTIONAL DISTRESS [None]
  - CHRONIC OBSTRUCTIVE PULMONARY DISEASE [None]
  - RHINITIS ALLERGIC [None]
  - VASCULAR CALCIFICATION [None]
  - GASTROOESOPHAGEAL REFLUX DISEASE [None]
  - ARTERIAL OCCLUSIVE DISEASE [None]
  - ECONOMIC PROBLEM [None]
  - HYPERLIPIDAEMIA [None]
  - DEPRESSION [None]
  - EXTRAPYRAMIDAL DISORDER [None]
